FAERS Safety Report 25024318 (Version 1)
Quarter: 2025Q1

REPORT INFORMATION
  Report Type: Spontaneous
  Country: US (occurrence: None)
  Receive Date: 20250228
  Receipt Date: 20250228
  Transmission Date: 20250408
  Serious: Yes (Hospitalization)
  Sender: FDA-CTU
  Company Number: None

PATIENT
  Age: 75 Year
  Sex: Male
  Weight: 71 kg

DRUGS (2)
  1. ZELBORAF [Suspect]
     Active Substance: VEMURAFENIB
     Indication: Malignant melanoma
     Dosage: FREQUENCY : TWICE A DAY;?
     Route: 048
     Dates: start: 20240605
  2. COTELLIC [Suspect]
     Active Substance: COBIMETINIB FUMARATE
     Dosage: FREQUENCY : DAILY;?
     Route: 048
     Dates: start: 20240605

REACTIONS (9)
  - Melanoma recurrent [None]
  - Metastases to adrenals [None]
  - Adrenal insufficiency [None]
  - Hypertension [None]
  - Oral pain [None]
  - Drug eruption [None]
  - Stevens-Johnson syndrome [None]
  - Therapy cessation [None]
  - Toxic epidermal necrolysis [None]

NARRATIVE: CASE EVENT DATE: 20241105
